FAERS Safety Report 5224094-9 (Version None)
Quarter: 2007Q1

REPORT INFORMATION
  Report Type: 
  Country: None (occurrence: None)
  Receive Date: 20070130
  Receipt Date: 20070122
  Transmission Date: 20070707
  Serious: Yes (Other)
  Sender: FDA-Public Use
  Company Number: US-JNJFOC-20070102614

PATIENT
  Sex: Female
  Weight: 77.11 kg

DRUGS (20)
  1. REMICADE [Suspect]
     Route: 042
  2. REMICADE [Suspect]
     Route: 042
  3. REMICADE [Suspect]
     Indication: RHEUMATOID ARTHRITIS
     Route: 042
  4. CENESTIN [Concomitant]
  5. CYCLOBENZAPRINE HCL [Concomitant]
  6. NITROGLYCERIN [Concomitant]
  7. ASPIRIN [Concomitant]
  8. NIFEDIPINE [Concomitant]
  9. DIOVAN [Concomitant]
  10. CYMBALTA [Concomitant]
  11. MULTIVITAMINS WITH MINERALS [Concomitant]
  12. FOLIC ACID [Concomitant]
  13. MTX [Concomitant]
     Route: 050
  14. ALEVE [Concomitant]
  15. BONIVA [Concomitant]
  16. LIPITOR [Concomitant]
  17. KETOPROFEN [Concomitant]
  18. METAMUCIL [Concomitant]
  19. ACETAMINOPHEN AND CODEINE PHOSPHATE #3 [Concomitant]
  20. LASIX [Concomitant]

REACTIONS (1)
  - SQUAMOUS CELL CARCINOMA [None]
